FAERS Safety Report 19794629 (Version 9)
Quarter: 2023Q4

REPORT INFORMATION
  Report Type: Report from Study
  Country: FR (occurrence: FR)
  Receive Date: 20210906
  Receipt Date: 20231101
  Transmission Date: 20240109
  Serious: Yes (Hospitalization, Other)
  Sender: FDA-Public Use
  Company Number: FR-ABBVIE-20K-056-3591742-00

PATIENT
  Age: 82 Year
  Sex: Male
  Weight: 85 kg

DRUGS (7)
  1. VENETOCLAX [Suspect]
     Active Substance: VENETOCLAX
     Indication: Chronic lymphocytic leukaemia
     Dosage: 20 MILLIGRAM
     Route: 048
     Dates: start: 20200727, end: 20200802
  2. VENETOCLAX [Suspect]
     Active Substance: VENETOCLAX
     Indication: Chronic lymphocytic leukaemia
     Dosage: 50 MILLIGRAM
     Route: 048
     Dates: start: 20200803, end: 20200809
  3. VENETOCLAX [Suspect]
     Active Substance: VENETOCLAX
     Indication: Chronic lymphocytic leukaemia
     Dosage: 100 MILLIGRAM
     Route: 048
     Dates: start: 20200810, end: 20200816
  4. VENETOCLAX [Suspect]
     Active Substance: VENETOCLAX
     Indication: Chronic lymphocytic leukaemia
     Dosage: 200 MILLIGRAM
     Route: 048
     Dates: start: 20200817, end: 20200823
  5. VENETOCLAX [Suspect]
     Active Substance: VENETOCLAX
     Indication: Chronic lymphocytic leukaemia
     Dosage: 400 MILLIGRAM
     Route: 048
     Dates: start: 20200824
  6. FASTURTEC [Concomitant]
     Active Substance: RASBURICASE
     Indication: Hypouricaemia
     Dates: start: 20200728
  7. ALLOPURINOL [Concomitant]
     Active Substance: ALLOPURINOL
     Indication: Prophylaxis
     Dates: start: 20200921

REACTIONS (16)
  - Hypervolaemia [Recovered/Resolved]
  - Balance disorder [Not Recovered/Not Resolved]
  - Haematuria [Recovered/Resolved]
  - Tremor [Recovered/Resolved]
  - Skin lesion [Recovered/Resolved]
  - Nausea [Recovered/Resolved]
  - Constipation [Recovered/Resolved]
  - Diarrhoea [Recovered/Resolved]
  - Hypocalcaemia [Recovered/Resolved]
  - Lymphopenia [Not Recovered/Not Resolved]
  - Cardiac murmur [Recovered/Resolved]
  - Skin lesion removal [Recovered/Resolved]
  - Hyperkalaemia [Not Recovered/Not Resolved]
  - Urinary retention [Recovered/Resolved]
  - Haematuria [Recovered/Resolved]
  - Urinary retention [Recovered/Resolved]

NARRATIVE: CASE EVENT DATE: 20200727
